FAERS Safety Report 8862544 (Version 1)
Quarter: 2012Q4

REPORT INFORMATION
  Report Type: 
  Country: US (occurrence: US)
  Receive Date: 20121026
  Receipt Date: 20121026
  Transmission Date: 20130627
  Serious: No
  Sender: FDA-Public Use
  Company Number: US-JNJFOC-20121009292

PATIENT
  Age: 50 None
  Sex: Female
  Weight: 71.22 kg

DRUGS (11)
  1. FENTANYL [Suspect]
     Indication: ARTHRITIS
     Dosage: NDC 0781-7240-55
     Route: 062
     Dates: start: 20120917
  2. FENTANYL [Suspect]
     Indication: BACK PAIN
     Dosage: NDC 0781-7240-55
     Route: 062
     Dates: start: 20120917
  3. ASPIRIN [Concomitant]
     Route: 048
     Dates: start: 2010
  4. CLARITIN [Concomitant]
     Indication: BRONCHITIS
     Dosage: one tablet at night
     Route: 048
  5. CLARITIN [Concomitant]
     Indication: MULTIPLE ALLERGIES
     Dosage: one tablet at night
     Route: 048
  6. BENAZEPRIL HCL [Concomitant]
     Indication: HYPERTENSION
     Route: 048
  7. GEMFIBROZIL [Concomitant]
     Indication: BLOOD CHOLESTEROL INCREASED
     Dosage: one tablet in morning and one tablet in evening
     Route: 048
     Dates: start: 2011
  8. METFORMIN [Concomitant]
     Indication: TYPE 2 DIABETES MELLITUS
     Dosage: 1000 mg
     Route: 048
  9. GLIPIZIDE [Concomitant]
     Indication: TYPE 2 DIABETES MELLITUS
     Dosage: one in morning and one in evening
     Route: 048
     Dates: start: 2012
  10. GABAPENTIN [Concomitant]
     Indication: NEUROPATHY PERIPHERAL
     Route: 048
  11. TEMAZEPAM [Concomitant]
     Indication: INSOMNIA
     Dosage: once in night
     Route: 048

REACTIONS (6)
  - Muscle spasms [Not Recovered/Not Resolved]
  - Neuropathy peripheral [Not Recovered/Not Resolved]
  - Wrong technique in drug usage process [Recovered/Resolved]
  - Product adhesion issue [Unknown]
  - Drug ineffective [Not Recovered/Not Resolved]
  - Poor quality sleep [Recovering/Resolving]
